FAERS Safety Report 12709712 (Version 5)
Quarter: 2017Q3

REPORT INFORMATION
  Report Type: Report from Study
  Country: DE (occurrence: DE)
  Receive Date: 20160902
  Receipt Date: 20170927
  Transmission Date: 20171127
  Serious: Yes (Hospitalization)
  Sender: FDA-Public Use
  Company Number: DE-ROCHE-1819207

PATIENT
  Age: 69 Year
  Sex: Male
  Weight: 72 kg

DRUGS (8)
  1. OXALIPLATIN. [Suspect]
     Active Substance: OXALIPLATIN
     Indication: COLORECTAL CANCER METASTATIC
     Dosage: MOST RECENT DOSE ON 16/AUG/2016
     Route: 042
     Dates: start: 20160502
  2. KABIVEN [Concomitant]
     Active Substance: AMINO ACIDS\ANHYDROUS DEXTROSE\CALCIUM CHLORIDE\MAGNESIUM SULFATE HEPTAHYDRATE\POTASSIUM CHLORIDE\SODIUM ACETATE\SODIUM GLYCEROPHOSPHATE ANHYDROUS\SOYBEAN OIL
     Indication: DEHYDRATION
     Route: 065
     Dates: start: 20160707, end: 20160720
  3. MUCOFALK [Concomitant]
     Indication: CONSTIPATION
     Dosage: 1 TABLE SPOON DOSING UNIT
     Route: 065
     Dates: start: 20160711
  4. BEVACIZUMAB. [Suspect]
     Active Substance: BEVACIZUMAB
     Indication: COLORECTAL CANCER METASTATIC
     Dosage: 15-30 MINUTE IV INFUSION ON DAY 1 OF EVERY 2-WEEK CYCLE (AS PER PROTOCOL)?MOST RECENT DOSE ON 16/AUG
     Route: 042
     Dates: start: 20160502
  5. LEUCOVORIN. [Suspect]
     Active Substance: LEUCOVORIN
     Indication: COLORECTAL CANCER METASTATIC
     Dosage: MOST RECENT DOSE ON 16/AUG/2016
     Route: 042
     Dates: start: 20160502
  6. PANTOZOL [Concomitant]
     Active Substance: PANTOPRAZOLE SODIUM
     Indication: GASTROOESOPHAGEAL REFLUX DISEASE
     Route: 065
     Dates: start: 20160711
  7. L-THYROX [Concomitant]
     Active Substance: LEVOTHYROXINE SODIUM
     Route: 065
  8. FLUOROURACIL. [Suspect]
     Active Substance: FLUOROURACIL
     Indication: COLORECTAL CANCER METASTATIC
     Dosage: MOST RECENT DOSE ON 16/AUG/2016
     Route: 042
     Dates: start: 20160502

REACTIONS (1)
  - Peripheral artery occlusion [Recovered/Resolved]

NARRATIVE: CASE EVENT DATE: 20160822
